FAERS Safety Report 10388882 (Version 1)
Quarter: 2014Q1

REPORT INFORMATION
  Report Type: Spontaneous
  Country: US (occurrence: None)
  Receive Date: 20140306
  Receipt Date: 20140306
  Transmission Date: 20141002
  Serious: Yes (Hospitalization)
  Sender: FDA-Public Use
  Company Number: 163-21880-13072075

PATIENT
  Age: 82 Year
  Sex: Female
  Weight: 97.5 kg

DRUGS (8)
  1. REVLIMID (LENALIDOMIDE) (5 MILLIGRAM, CAPSULES) [Suspect]
     Indication: MYELODYSPLASTIC SYNDROME
     Route: 048
     Dates: start: 20120328
  2. AMLODIPINE BESYLATE (AMLODIPINE BESILATE) (TABLETS) [Concomitant]
  3. LOSARTAN-HCTZ (HYZAAR) (TABLETS) [Concomitant]
  4. FUROSEMIDE (FUROSEMIDE) (TABLETS) [Concomitant]
  5. SYNTHROID (LEVOTHYROXINE SODIUM) (TABLETS) [Concomitant]
  6. METFORMIN HCL (METFORMIN HYDROCHLORIDE) (TABLETS) [Concomitant]
  7. BUPROPION HCL XL (BUPROPION HYDROCHLORIDE) (TABLETS) [Concomitant]
  8. COMPLETE MULTIVITAMIN (MULTIVITAMINS) (TABLETS) [Concomitant]

REACTIONS (1)
  - Pulmonary embolism [None]
